FAERS Safety Report 9887674 (Version 1)
Quarter: 2014Q1

REPORT INFORMATION
  Report Type: Spontaneous
  Country: US (occurrence: None)
  Receive Date: 20140207
  Receipt Date: 20140207
  Transmission Date: 20141002
  Serious: Yes (Hospitalization)
  Sender: FDA-Public Use
  Company Number: None

PATIENT
  Age: 65 Year
  Sex: Male
  Weight: 81.1 kg

DRUGS (1)
  1. GABAPENTIN [Suspect]
     Indication: PAIN
     Route: 048
     Dates: start: 20100716, end: 20111020

REACTIONS (7)
  - Hallucination [None]
  - Mental status changes [None]
  - Tremor [None]
  - Fall [None]
  - Confusional state [None]
  - Toxicity to various agents [None]
  - Renal impairment [None]
